FAERS Safety Report 24155078 (Version 1)
Quarter: 2024Q3

REPORT INFORMATION
  Report Type: Spontaneous
  Country: ES (occurrence: ES)
  Receive Date: 20240731
  Receipt Date: 20240731
  Transmission Date: 20241017
  Serious: Yes (Other)
  Sender: SANOFI AVENTIS
  Company Number: ES-SA-2024SA214547

PATIENT
  Age: 30 Year
  Sex: Female

DRUGS (2)
  1. ALEMTUZUMAB [Suspect]
     Active Substance: ALEMTUZUMAB
     Indication: Relapsing-remitting multiple sclerosis
     Dosage: UNK UNK, QCY
  2. ALEMTUZUMAB [Suspect]
     Active Substance: ALEMTUZUMAB
     Dosage: UNK UNK, QCY

REACTIONS (6)
  - Tumefactive multiple sclerosis [Recovering/Resolving]
  - Multiple sclerosis [Recovering/Resolving]
  - Rebound effect [Recovering/Resolving]
  - Cognitive disorder [Recovering/Resolving]
  - Fatigue [Recovering/Resolving]
  - Oedema [Recovering/Resolving]
